FAERS Safety Report 25134978 (Version 1)
Quarter: 2025Q1

REPORT INFORMATION
  Report Type: Report from Study
  Country: GB (occurrence: GB)
  Receive Date: 20250328
  Receipt Date: 20250328
  Transmission Date: 20250409
  Serious: Yes (Other)
  Sender: AMGEN
  Company Number: GB-UCBSA-2025003589

PATIENT
  Age: 74 Year
  Sex: Female

DRUGS (1)
  1. ROMOSOZUMAB [Suspect]
     Active Substance: ROMOSOZUMAB
     Indication: Osteoporosis
     Dosage: 105 MILLIGRAM, MONTHLY (QM)
     Route: 058
     Dates: start: 202411, end: 20250321

REACTIONS (6)
  - Osteoporosis [Unknown]
  - Gastrooesophageal reflux disease [Unknown]
  - Feeling cold [Unknown]
  - Pruritus [Unknown]
  - Malaise [Unknown]
  - Incorrect dose administered [Unknown]

NARRATIVE: CASE EVENT DATE: 20241101
